FAERS Safety Report 12428385 (Version 1)
Quarter: 2016Q2

REPORT INFORMATION
  Report Type: Spontaneous
  Country: TR (occurrence: TR)
  Receive Date: 20160602
  Receipt Date: 20160602
  Transmission Date: 20160815
  Serious: Yes (Other)
  Sender: FDA-Public Use
  Company Number: TR-MYLANLABS-2016M1022822

PATIENT

DRUGS (3)
  1. TRASTUZUMAB [Suspect]
     Active Substance: TRASTUZUMAB
     Indication: BREAST CANCER METASTATIC
     Route: 065
  2. ADWIVALSAR CO [Concomitant]
     Indication: HYPERTENSION
     Dosage: 80/12.5 MG/DAY
     Route: 065
  3. ATORVASTATIN [Suspect]
     Active Substance: ATORVASTATIN
     Indication: HYPERLIPIDAEMIA
     Dosage: 20 MG/DAY
     Route: 065

REACTIONS (3)
  - Tachycardia [Unknown]
  - Transaminases increased [Unknown]
  - Tachypnoea [Unknown]
